FAERS Safety Report 15481321 (Version 1)
Quarter: 2018Q4

REPORT INFORMATION
  Report Type: Spontaneous
  Country: FR (occurrence: FR)
  Receive Date: 20181010
  Receipt Date: 20181010
  Transmission Date: 20190205
  Serious: Yes (Other)
  Sender: FDA-Public Use
  Company Number: FR-AUROBINDO-AUR-APL-2018-049219

PATIENT
  Sex: Male

DRUGS (3)
  1. PREDNISONE. [Suspect]
     Active Substance: PREDNISONE
     Indication: PRODUCT USED FOR UNKNOWN INDICATION
     Dosage: UNK,DOSAGE FORM: UNSPECIFIED
     Route: 065
  2. ABIRATERONE                        /06295102/ [Suspect]
     Active Substance: ABIRATERONE
     Indication: PROSTATE CANCER METASTATIC
     Dosage: UNK
     Route: 048
  3. ABIRATERONE                        /06295102/ [Suspect]
     Active Substance: ABIRATERONE
     Dosage: UNK
     Route: 048

REACTIONS (1)
  - Hepatotoxicity [Recovered/Resolved]
